FAERS Safety Report 8614785-1 (Version None)
Quarter: 2012Q3

REPORT INFORMATION
  Report Type: 
  Country: None (occurrence: None)
  Receive Date: 20120823
  Receipt Date: 20120821
  Transmission Date: 20120928
  Serious: Yes (Other)
  Sender: FDA-Public Use
  Company Number: PE-PFIZER INC-2012206066

PATIENT
  Age: 81 Year
  Sex: Female

DRUGS (1)
  1. DESVENLAFAXINE SUCCINATE MONOHYDRATE [Suspect]
     Dosage: UNK
     Route: 048
     Dates: start: 20120727, end: 20120727

REACTIONS (1)
  - BLOOD PRESSURE DECREASED [None]
